FAERS Safety Report 9877150 (Version 1)
Quarter: 2014Q1

REPORT INFORMATION
  Report Type: Spontaneous
  Country: FR (occurrence: FR)
  Receive Date: 20140206
  Receipt Date: 20140206
  Transmission Date: 20141002
  Serious: Yes (Death, Other)
  Sender: FDA-Public Use
  Company Number: FR-JNJFOC-20140202549

PATIENT
  Sex: Female

DRUGS (3)
  1. XARELTO [Suspect]
     Indication: ATRIAL FIBRILLATION
     Route: 048
     Dates: start: 201311, end: 201401
  2. XARELTO [Suspect]
     Indication: CEREBROVASCULAR ACCIDENT PROPHYLAXIS
     Route: 048
     Dates: start: 201311, end: 201401
  3. TAREG [Concomitant]
     Indication: HYPERTENSION
     Route: 065

REACTIONS (3)
  - Gastrointestinal haemorrhage [Fatal]
  - Haematemesis [Fatal]
  - Gastritis erosive [Unknown]
